FAERS Safety Report 22131850 (Version 1)
Quarter: 2023Q1

REPORT INFORMATION
  Report Type: Spontaneous
  Country: CA (occurrence: CA)
  Receive Date: 20230323
  Receipt Date: 20230323
  Transmission Date: 20230417
  Serious: Yes (Other)
  Sender: FDA-Public Use
  Company Number: CA-FreseniusKabi-FK202303684

PATIENT
  Age: 52 Year
  Sex: Male

DRUGS (1)
  1. PIPERACILLIN AND TAZOBACTAM [Suspect]
     Active Substance: PIPERACILLIN SODIUM\TAZOBACTAM SODIUM
     Indication: Product used for unknown indication
     Route: 042

REACTIONS (6)
  - Lip swelling [Unknown]
  - Angioedema [Unknown]
  - Blood creatinine increased [Unknown]
  - Rash [Unknown]
  - Urticaria [Unknown]
  - Flushing [Unknown]
